FAERS Safety Report 16175818 (Version 2)
Quarter: 2019Q2

REPORT INFORMATION
  Report Type: Spontaneous
  Country: JP (occurrence: JP)
  Receive Date: 20190409
  Receipt Date: 20190528
  Transmission Date: 20190711
  Serious: Yes (Hospitalization)
  Sender: FDA-Public Use
  Company Number: JP-ROCHE-2298495

PATIENT
  Age: 75 Year
  Sex: Male
  Weight: 47 kg

DRUGS (7)
  1. TRAZENTA [Concomitant]
     Active Substance: LINAGLIPTIN
     Dosage: DOSAGE IS UNCERTAIN.
     Route: 065
  2. E KEPPRA [Concomitant]
     Active Substance: LEVETIRACETAM
     Dosage: DOSAGE IS UNCERTAIN.
     Route: 065
     Dates: start: 20170628
  3. NASEA [Concomitant]
     Active Substance: RAMOSETRON HYDROCHLORIDE
     Dosage: DOSAGE IS UNCERTAIN.
     Route: 065
     Dates: start: 20170705
  4. TEMODAL [Concomitant]
     Active Substance: TEMOZOLOMIDE
     Indication: MALIGNANT GLIOMA
     Route: 048
     Dates: start: 20180222
  5. AVASTIN [Suspect]
     Active Substance: BEVACIZUMAB
     Indication: MALIGNANT GLIOMA
     Route: 041
     Dates: start: 20180222
  6. AMLODIPINE [Concomitant]
     Active Substance: AMLODIPINE BESYLATE
     Dosage: DOSAGE IS UNCERTAIN.
     Route: 065
  7. SERTRALINE [Concomitant]
     Active Substance: SERTRALINE HYDROCHLORIDE
     Dosage: DOSAGE IS UNCERTAIN.
     Route: 065
     Dates: start: 20190124

REACTIONS (1)
  - Cerebral infarction [Recovered/Resolved]

NARRATIVE: CASE EVENT DATE: 20190227
